FAERS Safety Report 6204000-0 (Version None)
Quarter: 2009Q2

REPORT INFORMATION
  Report Type: 
  Country: None (occurrence: None)
  Receive Date: 20090526
  Receipt Date: 20090526
  Transmission Date: 20091009
  Serious: Yes (Other)
  Sender: FDA-Public Use
  Company Number: None

PATIENT
  Age: 62 Year
  Sex: Male
  Weight: 88.4514 kg

DRUGS (2)
  1. FLOMAX [Suspect]
     Indication: BENIGN PROSTATIC HYPERPLASIA
     Dosage: 0.4 MG 2/DAY THEN 1/DAY PO
     Route: 048
     Dates: start: 20090506, end: 20090525
  2. FLOMAX [Suspect]
     Indication: URINARY RETENTION
     Dosage: 0.4 MG 2/DAY THEN 1/DAY PO
     Route: 048
     Dates: start: 20090506, end: 20090525

REACTIONS (4)
  - ASTHENIA [None]
  - CARDIOVASCULAR DISORDER [None]
  - DYSPNOEA [None]
  - PALPITATIONS [None]
